FAERS Safety Report 26106981 (Version 1)
Quarter: 2025Q4

REPORT INFORMATION
  Report Type: Spontaneous
  Country: GB (occurrence: GB)
  Receive Date: 20251201
  Receipt Date: 20251201
  Transmission Date: 20260118
  Serious: Yes (Other)
  Sender: BAYER HEALTHCARE PHARMACEUTICALS INC.
  Company Number: None

PATIENT
  Age: 19 Year
  Sex: Female
  Weight: 47 kg

DRUGS (17)
  1. CIPROFLOXACIN [Suspect]
     Active Substance: CIPROFLOXACIN
     Indication: Ill-defined disorder
     Route: 048
     Dates: start: 20250801
  2. Libra [Concomitant]
     Indication: Ill-defined disorder
     Dosage: USE AS DIRECTED
     Dates: start: 20251029, end: 20251030
  3. TRIMETHOPRIM [Concomitant]
     Active Substance: TRIMETHOPRIM
     Indication: Ill-defined disorder
     Dosage: 1 DF, BID
     Route: 048
     Dates: start: 20250822, end: 20250829
  4. TRIMETHOPRIM [Concomitant]
     Active Substance: TRIMETHOPRIM
     Indication: Urinary tract infection
  5. NITROFURANTOIN [Concomitant]
     Active Substance: NITROFURANTOIN
     Indication: Ill-defined disorder
     Dosage: 1 DF, BID
     Route: 048
     Dates: start: 20250905, end: 20250912
  6. FLUCLOXACILLIN [Concomitant]
     Active Substance: FLUCLOXACILLIN
     Indication: Ill-defined disorder
     Dosage: 2 DF, QID
     Route: 048
     Dates: start: 20251104, end: 20251109
  7. AMOXICILLIN [Concomitant]
     Active Substance: AMOXICILLIN
     Indication: Ill-defined disorder
     Dosage: 1 DF, TID
     Route: 048
     Dates: start: 20251112, end: 20251117
  8. MELATONIN [Concomitant]
     Active Substance: MELATONIN
     Indication: Ill-defined disorder
     Dosage: 4 MG, HS
     Route: 048
     Dates: start: 20241204
  9. SOLIFENACIN [Concomitant]
     Active Substance: SOLIFENACIN
     Indication: Ill-defined disorder
     Dosage: 1 DF, QD
     Route: 048
     Dates: start: 20241204, end: 20251029
  10. SOLIFENACIN [Concomitant]
     Active Substance: SOLIFENACIN
     Indication: Hypertonic bladder
  11. ALVERINE CITRATE [Concomitant]
     Active Substance: ALVERINE CITRATE
     Indication: Ill-defined disorder
     Dosage: TAKE ONE CAPSULE ONE TO THREE TIMES A DAY
     Route: 048
     Dates: start: 20251029
  12. LANSOPRAZOLE [Concomitant]
     Active Substance: LANSOPRAZOLE
     Indication: Ill-defined disorder
     Dosage: 1 DF, QD
     Route: 048
     Dates: start: 20251029
  13. ONDANSETRON [Concomitant]
     Active Substance: ONDANSETRON
     Indication: Ill-defined disorder
     Dosage: 1 DF, TID
     Route: 048
     Dates: start: 20251029
  14. PRUCALOPRIDE [Concomitant]
     Active Substance: PRUCALOPRIDE
     Indication: Ill-defined disorder
     Dosage: 1 DF, QD
     Route: 048
     Dates: start: 20251029
  15. POLYETHYLENE GLYCOL 3350\POTASSIUM CHLORIDE\SODIUM BICARBONATE\SODIUM [Concomitant]
     Active Substance: POLYETHYLENE GLYCOL 3350\POTASSIUM CHLORIDE\SODIUM BICARBONATE\SODIUM CHLORIDE
     Indication: Ill-defined disorder
     Dosage: ONE TO TWO SACHETS TO BE TAKEN DAILY NASOJEJUN
     Dates: start: 20251031
  16. MIRTAZAPINE [Concomitant]
     Active Substance: MIRTAZAPINE
     Indication: Ill-defined disorder
     Dosage: 1 DF, QD
     Route: 048
     Dates: start: 20251031
  17. DOCUSATE SODIUM [Concomitant]
     Active Substance: DOCUSATE SODIUM
     Indication: Ill-defined disorder
     Dosage: 2 DF, BID
     Route: 048
     Dates: start: 20251106

REACTIONS (2)
  - Dystonia [Recovered/Resolved]
  - Conversion disorder [None]
